FAERS Safety Report 11521019 (Version 1)
Quarter: 2015Q3

REPORT INFORMATION
  Report Type: Spontaneous
  Country: HR (occurrence: HR)
  Receive Date: 20150918
  Receipt Date: 20150918
  Transmission Date: 20151125
  Serious: Yes (Hospitalization)
  Sender: FDA-Public Use
  Company Number: HR-IPCA LABORATORIES LIMITED-IPC201509-000594

PATIENT
  Age: 68 Year
  Sex: Female

DRUGS (1)
  1. ALLOPURINOL. [Suspect]
     Active Substance: ALLOPURINOL
     Indication: GOUT

REACTIONS (3)
  - Polyneuropathy [Recovering/Resolving]
  - Copper deficiency [Recovered/Resolved]
  - Microcytic anaemia [Recovered/Resolved]
